FAERS Safety Report 8822522 (Version 1)
Quarter: 2012Q4

REPORT INFORMATION
  Report Type: 
  Country: MX (occurrence: MX)
  Receive Date: 20121003
  Receipt Date: 20121003
  Transmission Date: 20130627
  Serious: Yes (Hospitalization)
  Sender: FDA-Public Use
  Company Number: MX-PFIZER INC-2012243036

PATIENT
  Age: 69 Year
  Sex: Female

DRUGS (18)
  1. LYRICA [Suspect]
     Indication: PARKINSON^S DISEASE
     Dosage: 300 mg, 1x/day
     Route: 048
     Dates: start: 201105
  2. LYRICA [Suspect]
     Indication: NERVOUSNESS
  3. EXELON [Concomitant]
     Indication: PARKINSON^S DISEASE
     Dosage: 9.5 mg, UNK
     Route: 062
     Dates: start: 201105
  4. EXELON [Concomitant]
     Indication: NERVOUSNESS
  5. PK-MERZ [Concomitant]
     Indication: PARKINSON^S DISEASE
     Dosage: 100 mg, 2x/day
     Route: 048
     Dates: start: 201105
  6. PK-MERZ [Concomitant]
     Indication: NERVOUSNESS
  7. EBIXA [Concomitant]
     Indication: PARKINSON^S DISEASE
     Dosage: 20 mg, 1x/day
     Route: 048
     Dates: start: 201105
  8. EBIXA [Concomitant]
     Indication: NERVOUSNESS
  9. STALEVO [Concomitant]
     Indication: PARKINSON^S DISEASE
     Dosage: 50 mg, 1x/day
     Route: 048
     Dates: start: 201105
  10. STALEVO [Concomitant]
     Indication: NERVOUSNESS
  11. RIVOTRIL [Concomitant]
     Indication: PARKINSON^S DISEASE
     Dosage: 1 mg, 1x/day
     Route: 048
     Dates: start: 201105
  12. RIVOTRIL [Concomitant]
     Indication: NERVOUSNESS
  13. OMEPRAZOL [Concomitant]
     Indication: PARKINSON^S DISEASE
     Dosage: 20 mg, 1x/day
     Route: 048
     Dates: start: 201105
  14. OMEPRAZOL [Concomitant]
     Indication: NERVOUSNESS
  15. REMERON [Concomitant]
     Indication: PARKINSON^S DISEASE
     Dosage: 15 mg, 1x/day
     Route: 048
     Dates: start: 201105
  16. REMERON [Concomitant]
     Indication: NERVOUSNESS
  17. TRAZODONE [Concomitant]
     Indication: PARKINSON^S DISEASE
     Dosage: 300 mg, 1x/day
     Route: 048
     Dates: start: 201105
  18. TRAZODONE [Concomitant]
     Indication: NERVOUSNESS

REACTIONS (2)
  - Dehydration [Recovering/Resolving]
  - Off label use [Unknown]
